FAERS Safety Report 19948356 (Version 1)
Quarter: 2021Q4

REPORT INFORMATION
  Report Type: Spontaneous
  Country: US (occurrence: US)
  Receive Date: 20211012
  Receipt Date: 20211012
  Transmission Date: 20220303
  Serious: No
  Sender: FDA-Public Use
  Company Number: US-BAUSCH-BL-2021-033391

PATIENT
  Age: 81 Year
  Sex: Female

DRUGS (4)
  1. VYZULTA [Suspect]
     Active Substance: LATANOPROSTENE BUNOD
     Indication: Glaucoma
     Dosage: 1 DROP IN BOTH EYES ONCE DAILY
     Route: 047
     Dates: start: 20210316, end: 20210520
  2. DORZOLAMIDE (MICRO LABS) [Concomitant]
     Indication: Product used for unknown indication
     Route: 047
     Dates: start: 201906
  3. BRIMONIDINE (ALCON) [Concomitant]
     Indication: Product used for unknown indication
     Route: 047
     Dates: start: 201704
  4. COVID-19 VACCINE [Concomitant]
     Indication: COVID-19 prophylaxis
     Route: 065

REACTIONS (13)
  - Tremor [Not Recovered/Not Resolved]
  - Photopsia [Recovered/Resolved]
  - Dyspnoea [Not Recovered/Not Resolved]
  - Dyspnoea exertional [Not Recovered/Not Resolved]
  - Depression [Recovered/Resolved]
  - Pollakiuria [Recovered/Resolved]
  - Arthralgia [Not Recovered/Not Resolved]
  - Myalgia [Not Recovered/Not Resolved]
  - Dysphonia [Not Recovered/Not Resolved]
  - Drooling [Recovered/Resolved]
  - Dry mouth [Not Recovered/Not Resolved]
  - Somnolence [Recovered/Resolved]
  - Weight increased [Not Recovered/Not Resolved]

NARRATIVE: CASE EVENT DATE: 20210101
